FAERS Safety Report 9636457 (Version 2)
Quarter: 2013Q4

REPORT INFORMATION
  Report Type: Spontaneous
  Country: US (occurrence: US)
  Receive Date: 20131021
  Receipt Date: 20131108
  Transmission Date: 20140711
  Serious: Yes (Hospitalization)
  Sender: FDA-Public Use
  Company Number: US-OTSUKA-US-2013-11476

PATIENT
  Age: 50 Year
  Sex: Male

DRUGS (5)
  1. ABILIFY MAINTENA [Suspect]
     Indication: BIPOLAR DISORDER
     Dosage: 300 MG MILLIGRAM(S), UNK
     Route: 030
     Dates: start: 20130718
  2. ABILIFY MAINTENA [Suspect]
     Dosage: 300 MG MILLIGRAM(S), SINGLE
     Route: 030
     Dates: start: 20130816, end: 20130911
  3. ABILIFY [Concomitant]
     Indication: BIPOLAR DISORDER
     Dosage: 15 MG MILLIGRAM(S), QD
     Route: 048
     Dates: end: 20130718
  4. ABILIFY [Concomitant]
     Dosage: 5 MG MILLIGRAM(S), QD
     Route: 048
     Dates: start: 20130718, end: 20130722
  5. ABILIFY [Concomitant]
     Dosage: 15 MG MILLIGRAM(S), UNK
     Route: 048
     Dates: start: 20130723, end: 20130804

REACTIONS (2)
  - Schizophrenia, paranoid type [Recovered/Resolved with Sequelae]
  - Off label use [Recovered/Resolved]
